FAERS Safety Report 5246923-5 (Version None)
Quarter: 2007Q1

REPORT INFORMATION
  Report Type: 
  Country: None (occurrence: None)
  Receive Date: 20070226
  Receipt Date: 20070219
  Transmission Date: 20070707
  Serious: Yes (Hospitalization)
  Sender: FDA-Public Use
  Company Number: FR-BOEHRINGER INGELHEIM GMBH, GERMANY-2007-FF-00187FF

PATIENT
  Age: 76 Year
  Sex: Male

DRUGS (7)
  1. JOSIR [Suspect]
     Route: 048
     Dates: end: 20070102
  2. HYDREA [Concomitant]
     Route: 048
     Dates: end: 20061126
  3. HYDREA [Concomitant]
     Route: 048
     Dates: start: 20061127, end: 20070102
  4. LIPANTHYL [Concomitant]
     Route: 048
     Dates: end: 20070102
  5. KARDEGIC [Concomitant]
     Route: 048
     Dates: end: 20070102
  6. SECTRAL [Concomitant]
  7. PREVISCAN [Concomitant]

REACTIONS (3)
  - ANAEMIA [None]
  - CONDITION AGGRAVATED [None]
  - NEUTROPENIA [None]
